FAERS Safety Report 26213999 (Version 1)
Quarter: 2025Q4

REPORT INFORMATION
  Report Type: Spontaneous
  Country: US (occurrence: US)
  Receive Date: 20251230
  Receipt Date: 20251230
  Transmission Date: 20260118
  Serious: Yes (Other)
  Sender: CSL BEHRING
  Company Number: US-BEH-2025230150

PATIENT
  Age: 45 Year
  Sex: Female

DRUGS (3)
  1. ANDEMBRY [Suspect]
     Active Substance: GARADACIMAB-GXII
     Indication: Hereditary angioedema
     Dosage: 200 MG, QMT
     Route: 058
     Dates: start: 202511
  2. ANDEMBRY [Suspect]
     Active Substance: GARADACIMAB-GXII
     Indication: Prophylaxis
  3. ICATIBANT ACETATE [Concomitant]
     Active Substance: ICATIBANT ACETATE

REACTIONS (2)
  - Hereditary angioedema [Unknown]
  - Hereditary angioedema [Unknown]

NARRATIVE: CASE EVENT DATE: 20251201
